FAERS Safety Report 6177363-2 (Version None)
Quarter: 2009Q2

REPORT INFORMATION
  Report Type: 
  Country: None (occurrence: None)
  Receive Date: 20090504
  Receipt Date: 20090428
  Transmission Date: 20091009
  Serious: Yes (Hospitalization)
  Sender: FDA-Public Use
  Company Number: US-BIOGENIDEC-2009BI010298

PATIENT
  Age: 52 Year
  Sex: Male
  Weight: 64 kg

DRUGS (5)
  1. TYSABRI [Suspect]
     Indication: MULTIPLE SCLEROSIS
     Route: 042
     Dates: start: 20090216
  2. AVODART [Concomitant]
     Indication: PROSTATOMEGALY
  3. FLOMAX [Concomitant]
     Indication: PROSTATOMEGALY
  4. TIZANIDINE HCL [Concomitant]
  5. BACLOFEN [Concomitant]
     Indication: RESTLESS LEGS SYNDROME

REACTIONS (19)
  - ABDOMINAL PAIN UPPER [None]
  - ANOREXIA [None]
  - ANXIETY [None]
  - ASTHENIA [None]
  - BALANCE DISORDER [None]
  - BURNING SENSATION [None]
  - CENTRAL NERVOUS SYSTEM LESION [None]
  - CHEST DISCOMFORT [None]
  - CONSTIPATION [None]
  - DEHYDRATION [None]
  - DYSURIA [None]
  - FALL [None]
  - HEADACHE [None]
  - INSOMNIA [None]
  - MUSCLE SPASMS [None]
  - MUSCULOSKELETAL CHEST PAIN [None]
  - NUCLEAR MAGNETIC RESONANCE IMAGING ABNORMAL [None]
  - PERIORBITAL HAEMATOMA [None]
  - WEIGHT DECREASED [None]
